FAERS Safety Report 17441093 (Version 1)
Quarter: 2020Q1

REPORT INFORMATION
  Report Type: Spontaneous
  Country: US (occurrence: US)
  Receive Date: 20200220
  Receipt Date: 20200220
  Transmission Date: 20200409
  Serious: Yes (Other)
  Sender: FDA-Public Use
  Company Number: US-PFIZER INC-2020060436

PATIENT
  Age: 7 Year

DRUGS (1)
  1. DRISTAN COLD MULTISYMPTOM [Suspect]
     Active Substance: ACETAMINOPHEN\CHLORPHENIRAMINE MALEATE\PHENYLEPHRINE HYDROCHLORIDE
     Indication: HYPERSENSITIVITY
     Dosage: UNK
     Dates: start: 1959

REACTIONS (4)
  - Hallucination, visual [Unknown]
  - Mental impairment [Unknown]
  - Intentional product use issue [Unknown]
  - Drug abuse [Unknown]

NARRATIVE: CASE EVENT DATE: 1959
